FAERS Safety Report 7631591-5 (Version None)
Quarter: 2011Q3

REPORT INFORMATION
  Report Type: 
  Country: None (occurrence: None)
  Receive Date: 20110725
  Receipt Date: 20110715
  Transmission Date: 20111222
  Serious: Yes (Hospitalization)
  Sender: FDA-Public Use
  Company Number: FR-SANOFI-AVENTIS-2011SA045161

PATIENT
  Age: 79 Year
  Sex: Female

DRUGS (8)
  1. EUPRESSYL [Suspect]
     Route: 048
  2. CORDIPATCH [Suspect]
     Indication: ANGINA PECTORIS
     Route: 062
  3. QUININE AND DERIVATIVES [Concomitant]
  4. POTASSIUM CHLORIDE [Concomitant]
     Indication: HYPOKALAEMIA
  5. BECLOMETASONE/FENOTEROL [Concomitant]
     Indication: ASTHMA
  6. EZETIMIBE [Concomitant]
  7. LASIX [Suspect]
     Route: 048
  8. LAMALINE [Concomitant]
     Indication: PAIN

REACTIONS (1)
  - MALAISE [None]
